FAERS Safety Report 21781061 (Version 1)
Quarter: 2022Q4

REPORT INFORMATION
  Report Type: Other
  Country: US (occurrence: None)
  Receive Date: 20221227
  Receipt Date: 20221227
  Transmission Date: 20230113
  Serious: Yes (Other)
  Sender: FDA-Public Use
  Company Number: US-ROCHE-3251368

PATIENT
  Age: 66 Year
  Sex: Female

DRUGS (1)
  1. ERIVEDGE [Suspect]
     Active Substance: VISMODEGIB
     Indication: Loeys-Dietz syndrome
     Route: 048

REACTIONS (2)
  - Off label use [Unknown]
  - Rash macular [Unknown]
